FAERS Safety Report 21931391 (Version 1)
Quarter: 2023Q1

REPORT INFORMATION
  Report Type: Spontaneous
  Country: US (occurrence: None)
  Receive Date: 20230130
  Receipt Date: 20230130
  Transmission Date: 20230418
  Serious: Yes (Other)
  Sender: FDA-Public Use
  Company Number: None

PATIENT
  Sex: Male

DRUGS (1)
  1. HUMIRA [Suspect]
     Active Substance: ADALIMUMAB
     Indication: Crohn^s disease
     Dosage: 40 MG/0.8ML SUBCUTNEOUS??INJECT 0.8 ML (40 MG TOTAL) UNDER THE SKIN (SUBCUTANEOUS INJECTION) EVERY 7
     Route: 058
     Dates: start: 20170105

REACTIONS (3)
  - Skin cancer [None]
  - Rash [None]
  - Skin irritation [None]
